FAERS Safety Report 6009091-8 (Version None)
Quarter: 2008Q4

REPORT INFORMATION
  Report Type: 
  Country: None (occurrence: None)
  Receive Date: 20081216
  Receipt Date: 20081202
  Transmission Date: 20090506
  Serious: Yes (Hospitalization)
  Sender: FDA-Public Use
  Company Number: 2008PV000094

PATIENT
  Age: 68 Year
  Sex: Female

DRUGS (1)
  1. DEPOCYT [Suspect]
     Indication: PROPHYLAXIS
     Dosage: 50 MG; 3X; INTH
     Route: 055

REACTIONS (2)
  - DEMYELINATION [None]
  - GUILLAIN-BARRE SYNDROME [None]
